FAERS Safety Report 12180254 (Version 2)
Quarter: 2016Q1

REPORT INFORMATION
  Report Type: Spontaneous
  Country: MX (occurrence: MX)
  Receive Date: 20160315
  Receipt Date: 20160318
  Transmission Date: 20160526
  Serious: Yes (Death, Hospitalization, Disabling)
  Sender: FDA-Public Use
  Company Number: MX-ACTELION-A-CH2016-132653

PATIENT
  Age: 27 Year
  Sex: Male

DRUGS (3)
  1. ZAVESCA [Suspect]
     Active Substance: MIGLUSTAT
     Indication: NIEMANN-PICK DISEASE
     Dosage: 100 MG, UNK
     Route: 048
     Dates: start: 20120525, end: 20160302
  2. CLONAZEPAM. [Concomitant]
     Active Substance: CLONAZEPAM
     Indication: SEIZURE
     Dosage: UNK
     Dates: end: 20160302
  3. LEVETIRACETAM. [Concomitant]
     Active Substance: LEVETIRACETAM
     Indication: SEIZURE
     Dosage: UNK
     Dates: end: 20160302

REACTIONS (7)
  - Niemann-Pick disease [Fatal]
  - Disease progression [Fatal]
  - Dystonia [Unknown]
  - Physical disability [Unknown]
  - Multiple organ dysfunction syndrome [Fatal]
  - Ataxia [Unknown]
  - Pneumonia [Fatal]

NARRATIVE: CASE EVENT DATE: 2013
